FAERS Safety Report 9653220 (Version 1)
Quarter: 2013Q4

REPORT INFORMATION
  Report Type: Report from Study
  Country: JP (occurrence: JP)
  Receive Date: 20131029
  Receipt Date: 20131029
  Transmission Date: 20140711
  Serious: Yes (Hospitalization)
  Sender: FDA-Public Use
  Company Number: JP-GLAXOSMITHKLINE-B0936792A

PATIENT
  Age: 46 Year
  Sex: Female
  Weight: 45 kg

DRUGS (3)
  1. VOTRIENT 200MG [Suspect]
     Indication: PERIPHERAL NERVE SHEATH TUMOUR MALIGNANT
     Dosage: 600MG PER DAY
     Route: 048
     Dates: start: 20121030, end: 20121126
  2. VOTRIENT 200MG [Suspect]
     Indication: PERIPHERAL NERVE SHEATH TUMOUR MALIGNANT
     Dosage: 400MG PER DAY
     Route: 048
     Dates: start: 20121127, end: 20121128
  3. VOTRIENT 200MG [Suspect]
     Indication: PERIPHERAL NERVE SHEATH TUMOUR MALIGNANT
     Dosage: 400MG PER DAY
     Route: 048
     Dates: start: 20121204, end: 20130106

REACTIONS (8)
  - Malaise [Unknown]
  - Palpitations [Recovering/Resolving]
  - Nausea [Recovered/Resolved]
  - Vomiting [Recovered/Resolved]
  - White blood cell count decreased [Recovered/Resolved]
  - Proteinuria [Not Recovered/Not Resolved]
  - Neutrophil count decreased [Recovered/Resolved]
  - Pleural effusion [Unknown]
